FAERS Safety Report 7797362-4 (Version None)
Quarter: 2011Q4

REPORT INFORMATION
  Report Type: 
  Country: None (occurrence: None)
  Receive Date: 20111005
  Receipt Date: 20110926
  Transmission Date: 20120403
  Serious: Yes (Other)
  Sender: FDA-Public Use
  Company Number: US-RB-032405-11

PATIENT
  Age: 59 Year
  Sex: Male

DRUGS (2)
  1. SUBOXONE [Suspect]
     Indication: PRODUCT USED FOR UNKNOWN INDICATION
     Dosage: UNKNOWN DOSING DETAILS
     Route: 065
  2. SUBOXONE [Suspect]
     Indication: PRODUCT USED FOR UNKNOWN INDICATION
     Dosage: UNKNOWN DOSING DETAILS
     Route: 065

REACTIONS (11)
  - SUICIDAL IDEATION [None]
  - ABDOMINAL DISCOMFORT [None]
  - SOMNOLENCE [None]
  - INSOMNIA [None]
  - PAIN [None]
  - NASOPHARYNGITIS [None]
  - DRUG WITHDRAWAL SYNDROME [None]
  - INFLUENZA [None]
  - NASAL CONGESTION [None]
  - FEELING ABNORMAL [None]
  - CONSTIPATION [None]
